FAERS Safety Report 17324460 (Version 1)
Quarter: 2020Q1

REPORT INFORMATION
  Report Type: Spontaneous
  Country: IT (occurrence: IT)
  Receive Date: 20200127
  Receipt Date: 20200127
  Transmission Date: 20200409
  Serious: Yes (Hospitalization)
  Sender: FDA-Public Use
  Company Number: IT-MYLANLABS-2020M1008977

PATIENT
  Age: 37 Year
  Sex: Female

DRUGS (7)
  1. LARGACTIL                          /00011901/ [Suspect]
     Active Substance: CHLORPROMAZINE
     Indication: MENTAL DISORDER
     Dosage: 1500 MILLIGRAM, TOTAL
     Route: 048
     Dates: start: 20191104, end: 20191104
  2. NOZINAN                            /00038601/ [Concomitant]
     Active Substance: LEVOMEPROMAZINE
     Dosage: UNK
  3. DEPAKIN [Concomitant]
     Active Substance: VALPROATE SODIUM
     Dosage: 1500 MILLIGRAM
     Route: 048
  4. SERENASE                           /00027401/ [Concomitant]
     Active Substance: HALOPERIDOL
     Dosage: 20 GTT DROPS
     Route: 048
  5. QUETIAPINE. [Suspect]
     Active Substance: QUETIAPINE
     Indication: MENTAL DISORDER
     Dosage: 4 GRAM, TOTAL
     Route: 048
     Dates: start: 20191104, end: 20191104
  6. CARDICOR [Concomitant]
     Active Substance: BISOPROLOL
     Dosage: UNK
  7. RIVOTRIL [Concomitant]
     Active Substance: CLONAZEPAM
     Dosage: 6 MILLIGRAM
     Route: 048

REACTIONS (2)
  - Somnolence [Recovering/Resolving]
  - Drug abuse [Recovering/Resolving]

NARRATIVE: CASE EVENT DATE: 20191104
